FAERS Safety Report 21672725 (Version 1)
Quarter: 2022Q4

REPORT INFORMATION
  Report Type: Spontaneous
  Country: US (occurrence: None)
  Receive Date: 20221201
  Receipt Date: 20221201
  Transmission Date: 20230112
  Serious: No
  Sender: FDA-Public Use
  Company Number: None

PATIENT
  Age: 42 Year
  Sex: Male
  Weight: 81.65 kg

DRUGS (2)
  1. ENBREL [Suspect]
     Active Substance: ETANERCEPT
     Indication: Psoriasis
     Dosage: FREQUENCY : TWICE A WEEK;?
     Route: 058
     Dates: start: 202203
  2. ENBREL [Suspect]
     Active Substance: ETANERCEPT
     Indication: Drug therapy

REACTIONS (1)
  - Illness [None]
